FAERS Safety Report 24188732 (Version 3)
Quarter: 2024Q3

REPORT INFORMATION
  Report Type: Report from Study
  Country: CO (occurrence: CO)
  Receive Date: 20240808
  Receipt Date: 20240829
  Transmission Date: 20241017
  Serious: Yes (Hospitalization)
  Sender: RECORDATI
  Company Number: CO-RECORDATI-2024006022

PATIENT

DRUGS (4)
  1. ISTURISA [Suspect]
     Active Substance: OSILODROSTAT PHOSPHATE
     Indication: Pituitary-dependent Cushing^s syndrome
     Dosage: 3 MILLIGRAM, Q12H
     Route: 048
     Dates: start: 20230310
  2. LITHIUM CARBONATE [Concomitant]
     Active Substance: LITHIUM CARBONATE
     Indication: Schizoaffective disorder
     Dosage: 900 MG (3 TABLETS (300 MG), QD IN THE EVENING
  3. BUPROPION [Concomitant]
     Active Substance: BUPROPION
     Indication: Schizoaffective disorder
     Dosage: 150 MG TABLET, QD (IN THE MORNING AFTER BREAKFAST)
  4. ARIPIPRAZOLE [Concomitant]
     Active Substance: ARIPIPRAZOLE
     Indication: Schizoaffective disorder
     Dosage: 15 MG TABLET, QD (IN THE EVENING)

REACTIONS (2)
  - Sepsis [Recovering/Resolving]
  - Nephrolithiasis [Recovering/Resolving]

NARRATIVE: CASE EVENT DATE: 20240723
